FAERS Safety Report 10083814 (Version 1)
Quarter: 2014Q2

REPORT INFORMATION
  Report Type: Report from Study
  Country: AU (occurrence: AU)
  Receive Date: 20140417
  Receipt Date: 20140417
  Transmission Date: 20141212
  Serious: Yes (Other)
  Sender: FDA-Public Use
  Company Number: PHHY2014AU046147

PATIENT
  Age: 38 Year
  Sex: Male

DRUGS (1)
  1. CLOZARIL [Suspect]
     Dosage: 400 MG, UNK
     Dates: start: 20030729, end: 20140411

REACTIONS (2)
  - Lyme disease [Unknown]
  - White blood cell count decreased [Unknown]
